FAERS Safety Report 24865887 (Version 1)
Quarter: 2025Q1

REPORT INFORMATION
  Report Type: Spontaneous
  Country: AT (occurrence: AT)
  Receive Date: 20250121
  Receipt Date: 20250121
  Transmission Date: 20250409
  Serious: Yes (Other)
  Sender: JOHNSON AND JOHNSON
  Company Number: AT-JNJFOC-20241260273

PATIENT
  Age: 51 Year
  Sex: Female

DRUGS (4)
  1. DARZALEX [Suspect]
     Active Substance: DARATUMUMAB
     Indication: Amyloidosis
     Route: 065
     Dates: start: 202408
  2. VELCADE [Suspect]
     Active Substance: BORTEZOMIB
     Indication: Amyloidosis
     Route: 065
  3. NINLARO [Suspect]
     Active Substance: IXAZOMIB CITRATE
     Indication: Amyloidosis
     Dates: start: 202408
  4. NINLARO [Suspect]
     Active Substance: IXAZOMIB CITRATE
     Dates: start: 202409

REACTIONS (4)
  - Therapeutic response decreased [Unknown]
  - Polyneuropathy [Unknown]
  - Amyloidosis [Unknown]
  - Off label use [Unknown]
